FAERS Safety Report 8764490 (Version 3)
Quarter: 2013Q2

REPORT INFORMATION
  Report Type: Spontaneous
  Country: US (occurrence: US)
  Receive Date: 20120831
  Receipt Date: 20130529
  Transmission Date: 20140414
  Serious: Yes (Other)
  Sender: FDA-Public Use
  Company Number: US-009507513-1202USA01657

PATIENT
  Sex: Female
  Weight: 59.86 kg

DRUGS (8)
  1. FOSAMAX [Suspect]
     Indication: OSTEOPOROSIS
     Dosage: 10 MG, UNK
     Route: 048
     Dates: start: 1997, end: 2000
  2. FOSAMAX [Suspect]
     Dosage: 70 MG, QW
     Route: 048
     Dates: start: 20001020, end: 200608
  3. VITAMIN D (UNSPECIFIED) [Concomitant]
     Dosage: UNK, QD
     Dates: start: 1992
  4. CALCIUM (UNSPECIFIED) [Concomitant]
     Dosage: 500 MG, TID
     Dates: start: 1992
  5. OMEGA-3 MARINE TRIGLYCERIDES [Concomitant]
     Dosage: UNK, QD
     Dates: start: 1992
  6. TIMOLOL [Concomitant]
     Indication: GLAUCOMA
     Dosage: UNK
     Dates: start: 1998
  7. ALPHAGAN [Concomitant]
     Indication: GLAUCOMA
     Dosage: UNK
     Dates: start: 2002
  8. ESTROGENS (UNSPECIFIED) [Concomitant]
     Dosage: UNK
     Dates: start: 1991, end: 2000

REACTIONS (32)
  - Femoral neck fracture [Unknown]
  - Bunion operation [Unknown]
  - Oral surgery [Unknown]
  - Eye excision [Unknown]
  - Surgery [Unknown]
  - Femur fracture [Recovering/Resolving]
  - Femur fracture [Recovering/Resolving]
  - Foot fracture [Unknown]
  - Bone disorder [Unknown]
  - Tooth disorder [Unknown]
  - Bunion [Unknown]
  - Adverse event [Unknown]
  - Hypertension [Unknown]
  - Sleep disorder [Unknown]
  - Anxiety [Unknown]
  - Vitamin D deficiency [Unknown]
  - Retinal detachment [Unknown]
  - Adverse drug reaction [Unknown]
  - Pain [Unknown]
  - Osteoporotic fracture [Unknown]
  - Pain [Unknown]
  - Osteoarthritis [Unknown]
  - Osteopenia [Unknown]
  - Tongue disorder [Unknown]
  - Oral pain [Unknown]
  - Nephrolithiasis [Unknown]
  - Insomnia [Unknown]
  - Polysubstance dependence [Unknown]
  - Depression [Unknown]
  - Colon adenoma [Unknown]
  - Conjunctival disorder [Unknown]
  - Pain in extremity [Unknown]
